FAERS Safety Report 7431956-0 (Version None)
Quarter: 2011Q1

REPORT INFORMATION
  Report Type: 
  Country: None (occurrence: None)
  Receive Date: 20110302
  Receipt Date: 20101222
  Transmission Date: 20110831
  Serious: No
  Sender: FDA-Public Use
  Company Number: 021075

PATIENT
  Sex: Male
  Weight: 83.9 kg

DRUGS (3)
  1. NORVASC [Concomitant]
  2. PENTASA [Concomitant]
  3. CIMZIA [Suspect]

REACTIONS (3)
  - FATIGUE [None]
  - SINUSITIS [None]
  - INSOMNIA [None]
